FAERS Safety Report 4289802-2 (Version None)
Quarter: 2004Q1

REPORT INFORMATION
  Report Type: 
  Country: None (occurrence: None)
  Receive Date: 20040210
  Receipt Date: 20040203
  Transmission Date: 20041129
  Serious: Yes (Hospitalization)
  Sender: FDA-Public Use
  Company Number: FR-GLAXOSMITHKLINE-B0321881A

PATIENT
  Age: 94 Year
  Sex: Female
  Weight: 45 kg

DRUGS (10)
  1. AUGMENTIN [Suspect]
     Indication: ERYSIPELAS
     Dosage: 1G THREE TIMES PER DAY
     Route: 042
     Dates: start: 20030927, end: 20031001
  2. AUGMENTIN [Suspect]
     Dosage: 1G THREE TIMES PER DAY
     Route: 048
     Dates: start: 20031001, end: 20031013
  3. MOTILIUM [Suspect]
     Route: 048
     Dates: start: 20030929, end: 20031014
  4. ULTRALEVURE [Suspect]
     Dosage: 1UNIT THREE TIMES PER DAY
     Route: 048
     Dates: start: 20031006, end: 20031014
  5. TRAMADOL HCL [Concomitant]
     Dosage: 50MG TWICE PER DAY
     Route: 048
     Dates: start: 20030928
  6. FLAMMAZINE [Concomitant]
     Route: 061
     Dates: start: 20030930
  7. IMODIUM [Concomitant]
     Route: 048
     Dates: start: 20031005
  8. MODOPAR [Concomitant]
  9. PLAVIX [Concomitant]
  10. DILTIAZEM HYDROCHLORIDE [Concomitant]

REACTIONS (1)
  - ACUTE GENERALISED EXANTHEMATOUS PUSTULOSIS [None]
